FAERS Safety Report 7897406-5 (Version None)
Quarter: 2011Q4

REPORT INFORMATION
  Report Type: 
  Country: None (occurrence: None)
  Receive Date: 20111107
  Receipt Date: 20111026
  Transmission Date: 20120403
  Serious: Yes (Other)
  Sender: FDA-Public Use
  Company Number: DE-JNJFOC-20111002748

PATIENT
  Age: 22 Year
  Sex: Male
  Weight: 120 kg

DRUGS (5)
  1. PALEXIA RETARD [Suspect]
     Indication: PRODUCT USED FOR UNKNOWN INDICATION
     Dosage: 2X150 MG
     Route: 048
     Dates: start: 20101013
  2. AMITRIPTYLINE HCL [Concomitant]
     Dosage: 1X10MG
     Route: 065
     Dates: start: 20100705
  3. PALEXIA RETARD [Suspect]
     Dosage: 2X200 MG
     Route: 048
  4. PALEXIA RETARD [Suspect]
     Dosage: AT LEAST 2X250 MG
     Route: 048
     Dates: end: 20101216
  5. TRANSTEC PRO [Concomitant]
     Route: 062

REACTIONS (3)
  - WITHDRAWAL SYNDROME [None]
  - PALPITATIONS [None]
  - DRUG INEFFECTIVE [None]
